FAERS Safety Report 10930906 (Version 1)
Quarter: 2015Q1

REPORT INFORMATION
  Report Type: Report from Study
  Country: US (occurrence: US)
  Receive Date: 20150319
  Receipt Date: 20150319
  Transmission Date: 20150721
  Serious: Yes (Death, Hospitalization, Other)
  Sender: FDA-Public Use
  Company Number: US-GILEAD-2015-0142474

PATIENT
  Age: 63 Year
  Sex: Male

DRUGS (6)
  1. OLANZAPINE. [Concomitant]
     Active Substance: OLANZAPINE
  2. AMBRISENTAN [Suspect]
     Active Substance: AMBRISENTAN
     Indication: PULMONARY ARTERIAL HYPERTENSION
     Dosage: 10 MG, QD
     Route: 048
     Dates: start: 20120703, end: 20150303
  3. SILDENAFIL. [Concomitant]
     Active Substance: SILDENAFIL
  4. PANTOPRAZOLE [Concomitant]
     Active Substance: PANTOPRAZOLE SODIUM
  5. RISPERIDONE. [Concomitant]
     Active Substance: RISPERIDONE
  6. LACTULOSE. [Concomitant]
     Active Substance: LACTULOSE

REACTIONS (3)
  - Death [Fatal]
  - Hepatic encephalopathy [Unknown]
  - Pneumonia [Unknown]

NARRATIVE: CASE EVENT DATE: 20150303
